FAERS Safety Report 6008432-5 (Version None)
Quarter: 2008Q4

REPORT INFORMATION
  Report Type: 
  Country: None (occurrence: None)
  Receive Date: 20081217
  Receipt Date: 20081209
  Transmission Date: 20090506
  Serious: Yes (Hospitalization)
  Sender: FDA-Public Use
  Company Number: FR-GILEAD-2008-0019397

PATIENT
  Sex: Male

DRUGS (3)
  1. TRUVADA [Suspect]
     Indication: HIV INFECTION
     Dates: start: 20070901
  2. PREZISTA [Suspect]
     Indication: HIV INFECTION
     Dates: start: 20070901
  3. NORVIR [Suspect]
     Dates: start: 20070901

REACTIONS (1)
  - HAEMATOMA [None]
